FAERS Safety Report 4785957-1 (Version None)
Quarter: 2005Q3

REPORT INFORMATION
  Report Type: 
  Country: None (occurrence: None)
  Receive Date: 20050929
  Receipt Date: 20050916
  Transmission Date: 20060218
  Serious: Yes (Hospitalization)
  Sender: FDA-Public Use
  Company Number: 2005130588

PATIENT
  Sex: Female

DRUGS (1)
  1. ZITHROMAX [Suspect]
     Indication: SINUSITIS
     Dosage: 250 MG
     Dates: start: 20050812

REACTIONS (2)
  - ABDOMINAL PAIN UPPER [None]
  - RECTAL HAEMORRHAGE [None]
